FAERS Safety Report 10541608 (Version 1)
Quarter: 2014Q4

REPORT INFORMATION
  Report Type: Spontaneous
  Country: US (occurrence: US)
  Receive Date: 20141024
  Receipt Date: 20141024
  Transmission Date: 20150529
  Serious: No
  Sender: FDA-Public Use
  Company Number: US-ALLERGAN-1317379US

PATIENT
  Age: 78 Year
  Sex: Male

DRUGS (6)
  1. HTN MEDICATION NOS [Concomitant]
     Indication: HYPERTENSION
  2. XALATAN [Concomitant]
     Active Substance: LATANOPROST
     Indication: MACULAR DEGENERATION
     Dosage: 2 GTT, QPM
     Route: 047
  3. ALPHAGAN P [Suspect]
     Active Substance: BRIMONIDINE TARTRATE
     Indication: GLAUCOMA
     Dosage: 2 GTT, TID
     Route: 047
  4. ALPHAGAN P [Suspect]
     Active Substance: BRIMONIDINE TARTRATE
     Indication: MACULAR DEGENERATION
  5. XALATAN [Concomitant]
     Active Substance: LATANOPROST
     Indication: GLAUCOMA
  6. VITAMINS                           /00067501/ [Concomitant]
     Indication: SUPPLEMENTATION THERAPY

REACTIONS (1)
  - Eyelid ptosis [Not Recovered/Not Resolved]
